FAERS Safety Report 10884912 (Version 1)
Quarter: 2015Q1

REPORT INFORMATION
  Report Type: Spontaneous
  Country: US (occurrence: US)
  Receive Date: 20150304
  Receipt Date: 20150304
  Transmission Date: 20150721
  Serious: No
  Sender: FDA-Public Use
  Company Number: US-TEVA-491342USA

PATIENT
  Age: 86 Year
  Sex: Female

DRUGS (2)
  1. AMOXICILLIN. [Suspect]
     Active Substance: AMOXICILLIN
  2. SUCRALFATE. [Suspect]
     Active Substance: SUCRALFATE

REACTIONS (1)
  - Hypersensitivity [Unknown]
